FAERS Safety Report 6360860-4 (Version None)
Quarter: 2009Q3

REPORT INFORMATION
  Report Type: 
  Country: None (occurrence: None)
  Receive Date: 20090918
  Receipt Date: 20090910
  Transmission Date: 20100115
  Serious: Yes (Hospitalization, Other)
  Sender: FDA-Public Use
  Company Number: CA-AMGEN-KDL363071

PATIENT
  Sex: Male
  Weight: 97.6 kg

DRUGS (12)
  1. ENBREL [Suspect]
     Indication: RHEUMATOID ARTHRITIS
     Route: 058
     Dates: start: 20050603
  2. OMEPRAZOLE [Concomitant]
     Route: 048
  3. AVAPRO [Concomitant]
     Route: 048
  4. METFORMIN HCL [Concomitant]
     Route: 048
  5. CALCIUM [Concomitant]
     Route: 048
  6. FLOMAX [Concomitant]
     Route: 048
  7. LIPITOR [Concomitant]
     Route: 048
  8. FOLIC ACID [Concomitant]
     Route: 048
  9. NEXIUM [Concomitant]
  10. ASPIRIN [Concomitant]
  11. METHOTREXATE [Concomitant]
     Dates: end: 20070425
  12. PREDNISONE [Concomitant]
     Route: 048

REACTIONS (2)
  - INFARCTION [None]
  - THROMBOCYTOPENIA [None]
